FAERS Safety Report 16247638 (Version 1)
Quarter: 2019Q2

REPORT INFORMATION
  Report Type: Spontaneous
  Country: US (occurrence: US)
  Receive Date: 20190428
  Receipt Date: 20190428
  Transmission Date: 20190711
  Serious: No
  Sender: FDA-Public Use
  Company Number: US-TEVA-2019-US-1042400

PATIENT
  Sex: Female

DRUGS (1)
  1. BUPRENORPHINE W/NALOXONE [Suspect]
     Active Substance: BUPRENORPHINE HYDROCHLORIDE\NALOXONE HYDROCHLORIDE
     Indication: PAIN MANAGEMENT
     Route: 060
     Dates: start: 2009

REACTIONS (4)
  - Drug ineffective [Unknown]
  - Adverse drug reaction [Unknown]
  - Malaise [Unknown]
  - Product substitution issue [Unknown]
